FAERS Safety Report 20857990 (Version 3)
Quarter: 2022Q3

REPORT INFORMATION
  Report Type: Spontaneous
  Country: US (occurrence: US)
  Receive Date: 20220521
  Receipt Date: 20220816
  Transmission Date: 20221027
  Serious: No
  Sender: FDA-Public Use
  Company Number: US-BRISTOL-MYERS SQUIBB COMPANY-2022-030423

PATIENT
  Age: 72 Year
  Sex: Male
  Weight: 78.47 kg

DRUGS (4)
  1. REVLIMID [Suspect]
     Active Substance: LENALIDOMIDE
     Indication: Plasma cell myeloma
     Dosage: ONCE DAILY FOR 21 DAYS ON, THEN 7 DAYS OFF
     Route: 048
     Dates: start: 20210321
  2. REVLIMID [Suspect]
     Active Substance: LENALIDOMIDE
     Indication: Mastocytic leukaemia
     Dosage: D1-21 Q28 DAYS
     Route: 048
     Dates: start: 20211209
  3. REVLIMID [Suspect]
     Active Substance: LENALIDOMIDE
     Route: 048
  4. NORVASC [Concomitant]
     Active Substance: AMLODIPINE BESYLATE
     Indication: Hypertension
     Route: 048

REACTIONS (3)
  - Fatigue [Not Recovered/Not Resolved]
  - Adverse event [Unknown]
  - Intentional product use issue [Unknown]
